FAERS Safety Report 8268116-X (Version None)
Quarter: 2012Q2

REPORT INFORMATION
  Report Type: 
  Country: None (occurrence: None)
  Receive Date: 20120409
  Receipt Date: 20120326
  Transmission Date: 20120825
  Serious: Yes (Other)
  Sender: FDA-Public Use
  Company Number: US-ELI_LILLY_AND_COMPANY-US201203008278

PATIENT
  Age: 81 Year
  Sex: Male

DRUGS (2)
  1. CIALIS [Suspect]
     Dosage: 20 MG, UNK
     Dates: start: 20060501
  2. THERAPEUTIC RADIOPHARMACEUTICALS [Concomitant]

REACTIONS (2)
  - HEARING IMPAIRED [None]
  - PROSTATIC DISORDER [None]
